FAERS Safety Report 6215335-X (Version None)
Quarter: 2009Q2

REPORT INFORMATION
  Report Type: 
  Country: None (occurrence: None)
  Receive Date: 20090604
  Receipt Date: 20081010
  Transmission Date: 20091009
  Serious: No
  Sender: FDA-Public Use
  Company Number: US-TYCO HEALTHCARE/MALLINCKRODT-T200801651

PATIENT

DRUGS (2)
  1. TECHNESCAN PYP KIT [Suspect]
     Indication: RADIOISOTOPE SCAN
     Dates: start: 20081009, end: 20081009
  2. ULTRA-TECHNEKOW [Concomitant]
     Indication: RADIOISOTOPE SCAN
     Dates: start: 20081009, end: 20081009

REACTIONS (1)
  - DRUG INEFFECTIVE [None]
